FAERS Safety Report 10488098 (Version 1)
Quarter: 2014Q4

REPORT INFORMATION
  Report Type: Spontaneous
  Country: CH (occurrence: CH)
  Receive Date: 20141002
  Receipt Date: 20141002
  Transmission Date: 20150528
  Serious: Yes (Hospitalization)
  Sender: FDA-Public Use
  Company Number: PHHY2014CH126084

PATIENT
  Sex: Male

DRUGS (5)
  1. ISONIAZID. [Suspect]
     Active Substance: ISONIAZID
     Indication: TUBERCULOSIS
  2. ETHAMBUTOL [Suspect]
     Active Substance: ETHAMBUTOL HYDROCHLORIDE
     Indication: TUBERCULOSIS
  3. METAMIZOLE [Suspect]
     Active Substance: METAMIZOLE
  4. RIFAMPICIN [Suspect]
     Active Substance: RIFAMPIN
     Indication: TUBERCULOSIS
  5. PYRAZINAMIDE SANDOZ [Suspect]
     Active Substance: PYRAZINAMIDE
     Indication: TUBERCULOSIS

REACTIONS (6)
  - Acute respiratory distress syndrome [Recovered/Resolved]
  - General physical health deterioration [Recovered/Resolved]
  - Renal impairment [Recovered/Resolved]
  - Alveolitis [Recovered/Resolved]
  - Tubulointerstitial nephritis [Recovered/Resolved]
  - Hepatic enzyme increased [Recovered/Resolved]
